FAERS Safety Report 8686367 (Version 2)
Quarter: 2013Q3

REPORT INFORMATION
  Report Type: Spontaneous
  Country: US (occurrence: US)
  Receive Date: 20120726
  Receipt Date: 20130731
  Transmission Date: 20140515
  Serious: No
  Sender: FDA-Public Use
  Company Number: US-ASTRAZENECA-2010SE36243

PATIENT
  Age: 61 Year
  Sex: Female
  Weight: 52.6 kg

DRUGS (23)
  1. SEROQUEL [Suspect]
     Indication: MANIA
     Route: 048
     Dates: start: 200907, end: 200907
  2. SEROQUEL [Suspect]
     Indication: BIPOLAR DISORDER
     Route: 048
     Dates: start: 200907, end: 200907
  3. SEROQUEL [Suspect]
     Indication: SLEEP DISORDER
     Route: 048
     Dates: start: 200907, end: 200907
  4. SEROQUEL [Suspect]
     Indication: MANIA
     Route: 048
     Dates: start: 20100727
  5. SEROQUEL [Suspect]
     Indication: BIPOLAR DISORDER
     Route: 048
     Dates: start: 20100727
  6. SEROQUEL [Suspect]
     Indication: SLEEP DISORDER
     Route: 048
     Dates: start: 20100727
  7. SEROQUEL [Suspect]
     Indication: MANIA
     Route: 048
  8. SEROQUEL [Suspect]
     Indication: BIPOLAR DISORDER
     Route: 048
  9. SEROQUEL [Suspect]
     Indication: SLEEP DISORDER
     Route: 048
  10. SEROQUEL [Suspect]
     Indication: MANIA
     Route: 048
  11. SEROQUEL [Suspect]
     Indication: BIPOLAR DISORDER
     Route: 048
  12. SEROQUEL [Suspect]
     Indication: SLEEP DISORDER
     Route: 048
  13. SEROQUEL [Suspect]
     Indication: MANIA
     Route: 048
     Dates: start: 2011
  14. SEROQUEL [Suspect]
     Indication: BIPOLAR DISORDER
     Route: 048
     Dates: start: 2011
  15. SEROQUEL [Suspect]
     Indication: SLEEP DISORDER
     Route: 048
     Dates: start: 2011
  16. SEROQUEL [Suspect]
     Indication: MANIA
     Route: 048
  17. SEROQUEL [Suspect]
     Indication: BIPOLAR DISORDER
     Route: 048
  18. SEROQUEL [Suspect]
     Indication: SLEEP DISORDER
     Route: 048
  19. SEROQUEL [Suspect]
     Indication: MANIA
     Dosage: 100 MG QD TRITRATED UP EVERY 2 MONTHS TO 350 MG (NOT SURE OF DOSE)
     Route: 048
  20. SEROQUEL [Suspect]
     Indication: BIPOLAR DISORDER
     Dosage: 100 MG QD TRITRATED UP EVERY 2 MONTHS TO 350 MG (NOT SURE OF DOSE)
     Route: 048
  21. SEROQUEL [Suspect]
     Indication: SLEEP DISORDER
     Dosage: 100 MG QD TRITRATED UP EVERY 2 MONTHS TO 350 MG (NOT SURE OF DOSE)
     Route: 048
  22. LITHIUM [Concomitant]
     Indication: BIPOLAR DISORDER
  23. RESTORIL [Concomitant]

REACTIONS (9)
  - Drug intolerance [Unknown]
  - Insomnia [Unknown]
  - Weight decreased [Unknown]
  - Cognitive disorder [Unknown]
  - Weight increased [Unknown]
  - Constipation [Unknown]
  - Blood pressure decreased [Unknown]
  - Sedation [Unknown]
  - Therapeutic response unexpected [Unknown]
